FAERS Safety Report 25703290 (Version 2)
Quarter: 2025Q4

REPORT INFORMATION
  Report Type: Report from Study
  Country: US (occurrence: US)
  Receive Date: 20250820
  Receipt Date: 20251010
  Transmission Date: 20260118
  Serious: Yes (Other)
  Sender: UCB
  Company Number: US-UCBSA-2025050605

PATIENT
  Age: 13 Year
  Sex: Male
  Weight: 36 kg

DRUGS (8)
  1. FINTEPLA [Suspect]
     Active Substance: FENFLURAMINE
     Indication: Severe myoclonic epilepsy of infancy
     Dosage: 0.635 MILLIGRAM PER KILOGRAM PER DAY TOTALLY 23.1 MILLIGRAN PER DAY
     Route: 048
     Dates: start: 20201215
  2. FINTEPLA [Suspect]
     Active Substance: FENFLURAMINE
     Dosage: 5 ML BY MOUTH EVERY MORNING AND 5.5 ML EVERY EVENING
     Route: 048
  3. ONFI [Concomitant]
     Active Substance: CLOBAZAM
     Indication: Product used for unknown indication
     Dosage: 10 MILLIGRAM, ONCE DAILY (QD)
     Route: 048
  4. KLONOPIN [Concomitant]
     Active Substance: CLONAZEPAM
     Indication: Seizure
     Dosage: 0.25 MILLIGRAM
     Route: 048
  5. CARNITOR [Concomitant]
     Active Substance: LEVOCARNITINE
     Indication: Product used for unknown indication
     Dosage: 660 MILLIGRAM, ONCE DAILY (QD)
     Route: 048
  6. MINERALS\VITAMINS [Concomitant]
     Active Substance: MINERALS\VITAMINS
     Indication: Product used for unknown indication
     Dosage: UNK
     Route: 048
  7. UROCIT-K [Concomitant]
     Active Substance: POTASSIUM CITRATE
     Indication: Product used for unknown indication
     Dosage: 10 MEQ
  8. ZONEGRAN [Concomitant]
     Active Substance: ZONISAMIDE
     Indication: Product used for unknown indication
     Dosage: 175 MILLIGRAM, ONCE DAILY (QD)

REACTIONS (6)
  - Seizure [Not Recovered/Not Resolved]
  - Mitral valve thickening [Recovered/Resolved]
  - Tricuspid valve thickening [Recovered/Resolved]
  - Irritability [Not Recovered/Not Resolved]
  - Product use issue [Unknown]
  - Drug ineffective [Unknown]

NARRATIVE: CASE EVENT DATE: 20230814
